FAERS Safety Report 5522842-1 (Version None)
Quarter: 2007Q4

REPORT INFORMATION
  Report Type: 
  Country: None (occurrence: None)
  Receive Date: 20071116
  Receipt Date: 20071115
  Transmission Date: 20080405
  Serious: Yes (Hospitalization)
  Sender: FDA-Public Use
  Company Number: 07-469

PATIENT
  Age: 24 Year
  Sex: Female

DRUGS (4)
  1. IBUPROFEN [Suspect]
     Indication: INFLUENZA LIKE ILLNESS
  2. ACETAMINOPHEN [Suspect]
     Indication: INFLUENZA LIKE ILLNESS
  3. ALPRAZOLAM [Concomitant]
  4. ESCITALOPRAM [Concomitant]

REACTIONS (2)
  - INTERSTITIAL LUNG DISEASE [None]
  - SELF-MEDICATION [None]
